FAERS Safety Report 14004121 (Version 2)
Quarter: 2017Q4

REPORT INFORMATION
  Report Type: Spontaneous
  Country: US (occurrence: US)
  Receive Date: 20170922
  Receipt Date: 20171006
  Transmission Date: 20180321
  Serious: No
  Sender: FDA-Public Use
  Company Number: US-JNJFOC-20170806973

PATIENT
  Age: 39 Year
  Sex: Female

DRUGS (1)
  1. LEVAQUIN [Suspect]
     Active Substance: LEVOFLOXACIN
     Indication: PRODUCT USED FOR UNKNOWN INDICATION
     Route: 065

REACTIONS (4)
  - Pruritus [Unknown]
  - Rash [Unknown]
  - Abdominal discomfort [Unknown]
  - Vomiting [Unknown]

NARRATIVE: CASE EVENT DATE: 20120412
